FAERS Safety Report 21068559 (Version 5)
Quarter: 2023Q1

REPORT INFORMATION
  Report Type: Report from Study
  Country: FR (occurrence: FR)
  Receive Date: 20220712
  Receipt Date: 20230309
  Transmission Date: 20230418
  Serious: Yes (Hospitalization)
  Sender: FDA-Public Use
  Company Number: FR-GBT-013945

PATIENT
  Age: 12 Year
  Sex: Male
  Weight: 27 kg

DRUGS (2)
  1. VOXELOTOR [Suspect]
     Active Substance: VOXELOTOR
     Indication: Product used for unknown indication
     Route: 065
     Dates: start: 20211215, end: 202201
  2. VOXELOTOR [Suspect]
     Active Substance: VOXELOTOR
     Indication: Product used for unknown indication
     Dates: start: 20230115

REACTIONS (5)
  - Sickle cell anaemia with crisis [Recovered/Resolved]
  - Cholelithiasis [Recovered/Resolved]
  - Abdominal pain upper [Recovered/Resolved]
  - Vomiting [Recovered/Resolved]
  - Therapy cessation [Unknown]

NARRATIVE: CASE EVENT DATE: 20220101
